FAERS Safety Report 7717015-8 (Version None)
Quarter: 2011Q3

REPORT INFORMATION
  Report Type: 
  Country: None (occurrence: None)
  Receive Date: 20110829
  Receipt Date: 20110820
  Transmission Date: 20111222
  Serious: Yes (Hospitalization, Other)
  Sender: FDA-Public Use
  Company Number: US-RB-028416-11

PATIENT
  Age: 34 Year
  Sex: Male

DRUGS (3)
  1. SUBOXONE [Suspect]
     Indication: PAIN
     Dosage: DOSING INFORMATION UNKNOWN
     Route: 065
  2. DILAUDID [Suspect]
     Indication: PRODUCT USED FOR UNKNOWN INDICATION
     Dosage: UNKNOWN DOSING DETAILS
  3. SUBUTEX [Suspect]
     Indication: PRODUCT USED FOR UNKNOWN INDICATION
     Dosage: UNKNOWN DOSING DETAILS
     Route: 065

REACTIONS (8)
  - NAUSEA [None]
  - HYPOKINESIA [None]
  - VOMITING [None]
  - OFF LABEL USE [None]
  - MALAISE [None]
  - DECREASED APPETITE [None]
  - HOSPITALISATION [None]
  - WEIGHT DECREASED [None]
